FAERS Safety Report 13345495 (Version 1)
Quarter: 2017Q1

REPORT INFORMATION
  Report Type: Spontaneous
  Country: US (occurrence: US)
  Receive Date: 20170316
  Receipt Date: 20170316
  Transmission Date: 20170428
  Serious: No
  Sender: FDA-Public Use
  Company Number: None

PATIENT
  Age: 37 Year
  Sex: Female

DRUGS (1)
  1. NEULASTA [Suspect]
     Active Substance: PEGFILGRASTIM
     Indication: NEUTROPENIA
     Route: 058
     Dates: start: 20170201

REACTIONS (4)
  - Intranasal hypoaesthesia [None]
  - Local swelling [None]
  - Dysphagia [None]
  - Paraesthesia [None]

NARRATIVE: CASE EVENT DATE: 20170215
